FAERS Safety Report 9144477 (Version 1)
Quarter: 2013Q1

REPORT INFORMATION
  Report Type: Spontaneous
  Country: FR (occurrence: FR)
  Receive Date: 20130306
  Receipt Date: 20130306
  Transmission Date: 20140127
  Serious: Yes (Other)
  Sender: FDA-Public Use
  Company Number: FR-ROCHE-1197604

PATIENT
  Age: 60 Year
  Sex: Female

DRUGS (2)
  1. LUCENTIS [Suspect]
     Indication: PRODUCT USED FOR UNKNOWN INDICATION
     Dosage: STRENGTH 10 MG/ML
     Route: 050
     Dates: start: 20080222
  2. LUCENTIS [Suspect]
     Route: 065
     Dates: start: 20080514, end: 20080514

REACTIONS (5)
  - Bronchial hyperreactivity [Not Recovered/Not Resolved]
  - Pyrexia [Recovered/Resolved]
  - Influenza like illness [Recovered/Resolved]
  - Arthralgia [Recovering/Resolving]
  - Cough [Not Recovered/Not Resolved]
